FAERS Safety Report 10554486 (Version 2)
Quarter: 2014Q4

REPORT INFORMATION
  Report Type: Spontaneous
  Country: US (occurrence: US)
  Receive Date: 20141030
  Receipt Date: 20141212
  Transmission Date: 20150529
  Serious: No
  Sender: FDA-Public Use
  Company Number: US-PFIZER INC-2014297475

PATIENT
  Age: 85 Year
  Sex: Female

DRUGS (3)
  1. TESSALON [Suspect]
     Active Substance: BENZONATATE
     Indication: COUGH
     Dosage: UNK UNK, 2X/DAY
  2. NASONEX [Concomitant]
     Active Substance: MOMETASONE FUROATE
     Dosage: UNK
  3. SINGULAIR [Concomitant]
     Active Substance: MONTELUKAST SODIUM
     Dosage: UNK

REACTIONS (1)
  - Dyspnoea [Unknown]
